FAERS Safety Report 4523467-7 (Version None)
Quarter: 2004Q4

REPORT INFORMATION
  Report Type: 
  Country: None (occurrence: None)
  Receive Date: 20041117
  Receipt Date: 20040629
  Transmission Date: 20050328
  Serious: Yes (Life-Threatening)
  Sender: FDA-Public Use
  Company Number: US-JNJFOC-20040705658

PATIENT
  Age: 44 Year
  Sex: Male
  Weight: 149.687 kg

DRUGS (2)
  1. LEVOFLOXACIN [Suspect]
     Indication: ATRIAL FIBRILLATION
     Dosage: 500 MG, 1 IN 1 DAY, INTRAVENOUS
     Route: 042
     Dates: start: 20030509
  2. LEVOFLOXACIN [Suspect]
     Indication: CARDIAC FAILURE CONGESTIVE
     Dosage: 500 MG, 1 IN 1 DAY, INTRAVENOUS
     Route: 042
     Dates: start: 20030509

REACTIONS (3)
  - CARDIAC ARREST [None]
  - TORSADE DE POINTES [None]
  - VENTRICULAR TACHYCARDIA [None]
